FAERS Safety Report 6755850-3 (Version None)
Quarter: 2010Q2

REPORT INFORMATION
  Report Type: 
  Country: None (occurrence: None)
  Receive Date: 20100604
  Receipt Date: 20100526
  Transmission Date: 20101027
  Serious: Yes (Other)
  Sender: FDA-Public Use
  Company Number: DK-JNJFOC-20100510160

PATIENT
  Age: 55 Year
  Sex: Female

DRUGS (3)
  1. REMICADE [Suspect]
     Indication: COLITIS ULCERATIVE
     Route: 042
  2. PREDNISOLONE [Concomitant]
  3. AZATHIOPRINE [Concomitant]

REACTIONS (1)
  - BREAST CANCER [None]
